FAERS Safety Report 19350049 (Version 1)
Quarter: 2021Q2

REPORT INFORMATION
  Report Type: Spontaneous
  Country: US (occurrence: US)
  Receive Date: 20210531
  Receipt Date: 20210531
  Transmission Date: 20210717
  Serious: No
  Sender: FDA-Public Use
  Company Number: US-STRIDES ARCOLAB LIMITED-2020SP011075

PATIENT
  Age: 24 Year
  Sex: Female

DRUGS (10)
  1. BENZYLPENICILLOYL POLYLYSINE [Suspect]
     Active Substance: BENZYLPENICILLOYL POLYLYSINE
     Indication: PRODUCT USED FOR UNKNOWN INDICATION
     Dosage: UNK
     Route: 065
  2. VANCOMYCIN [Suspect]
     Active Substance: VANCOMYCIN
     Indication: EVIDENCE BASED TREATMENT
     Dosage: 1.5 GRAM, ONCE EVERY 12 HRS
     Route: 065
  3. HISTAMINE [Suspect]
     Active Substance: HISTAMINE
     Indication: PRODUCT USED FOR UNKNOWN INDICATION
     Dosage: 6 MILLIGRAM PER MILLILITRE
     Route: 065
  4. SODIUM CHLORIDE. [Suspect]
     Active Substance: SODIUM CHLORIDE
     Indication: PRODUCT USED FOR UNKNOWN INDICATION
     Dosage: 0.9 PERCENT
     Route: 065
  5. CLINDAMYCIN. [Suspect]
     Active Substance: CLINDAMYCIN
     Indication: EVIDENCE BASED TREATMENT
     Dosage: UNK
     Route: 065
  6. PENICILLIN G [BENZYLPENICILLIN] [Suspect]
     Active Substance: PENICILLIN G
     Dosage: 24 MU DAILY (4 MU EVERY 4 HOURS)
     Route: 065
  7. PENICILLIN G [BENZYLPENICILLIN] [Suspect]
     Active Substance: PENICILLIN G
     Indication: EVIDENCE BASED TREATMENT
     Dosage: 10000 UNITS/ML
     Route: 065
  8. AMOXICILLIN/CLAVULANIC ACID [Suspect]
     Active Substance: AMOXICILLIN\CLAVULANIC ACID
     Indication: EVIDENCE BASED TREATMENT
     Dosage: UNK
     Route: 048
  9. CEFTRIAXONE. [Suspect]
     Active Substance: CEFTRIAXONE
     Indication: EVIDENCE BASED TREATMENT
     Dosage: 2 GRAM, ONCE EVERY 12 HRS
     Route: 065
  10. HISTAMINE [Suspect]
     Active Substance: HISTAMINE
     Dosage: 0.02 MILLIGRAM PER MILLILITRE
     Route: 065

REACTIONS (1)
  - Maternal exposure during pregnancy [Unknown]
